FAERS Safety Report 22240731 (Version 1)
Quarter: 2023Q2

REPORT INFORMATION
  Report Type: Spontaneous
  Country: GB (occurrence: GB)
  Receive Date: 20230421
  Receipt Date: 20230421
  Transmission Date: 20230721
  Serious: Yes (Death, Other)
  Sender: FDA-Public Use
  Company Number: GB-APIL-2312041US

PATIENT
  Sex: Male

DRUGS (1)
  1. DALBAVANCIN HYDROCHLORIDE [Suspect]
     Active Substance: DALBAVANCIN HYDROCHLORIDE
     Indication: Product used for unknown indication
     Dates: start: 20220404

REACTIONS (1)
  - Death [Fatal]

NARRATIVE: CASE EVENT DATE: 20220502
